FAERS Safety Report 17677907 (Version 2)
Quarter: 2020Q4

REPORT INFORMATION
  Report Type: Spontaneous
  Country: US (occurrence: US)
  Receive Date: 20200416
  Receipt Date: 20201021
  Transmission Date: 20210113
  Serious: Yes (Hospitalization, Other)
  Sender: FDA-Public Use
  Company Number: US-ABBVIE-20K-163-3364508-00

PATIENT
  Sex: Female
  Weight: 59.02 kg

DRUGS (4)
  1. HCTZ [Suspect]
     Active Substance: HYDROCHLOROTHIAZIDE
     Indication: HYPERTENSION
     Route: 065
  2. MAGNESIUM STEARATE [Suspect]
     Active Substance: MAGNESIUM STEARATE
     Indication: PRODUCT USED FOR UNKNOWN INDICATION
     Route: 065
  3. AMLODIPINE [Suspect]
     Active Substance: AMLODIPINE BESYLATE
     Indication: HYPERTENSION
     Route: 065
  4. SYNTHROID [Suspect]
     Active Substance: LEVOTHYROXINE SODIUM
     Indication: AUTOIMMUNE THYROIDITIS
     Route: 048
     Dates: start: 2008

REACTIONS (30)
  - Flushing [Recovering/Resolving]
  - Pain in jaw [Recovered/Resolved]
  - Mucosal dryness [Unknown]
  - Diarrhoea [Recovering/Resolving]
  - Flatulence [Recovering/Resolving]
  - Blood immunoglobulin E increased [Unknown]
  - Feeling abnormal [Recovered/Resolved]
  - Gastritis [Unknown]
  - Rhinorrhoea [Recovering/Resolving]
  - Hiatus hernia [Not Recovered/Not Resolved]
  - Cough [Recovered/Resolved]
  - Abdominal pain [Unknown]
  - Food allergy [Not Recovered/Not Resolved]
  - Cough [Recovering/Resolving]
  - Depressed mood [Recovering/Resolving]
  - Fibrosis [Not Recovered/Not Resolved]
  - Flatulence [Recovered/Resolved]
  - Ocular hyperaemia [Recovering/Resolving]
  - Weight decreased [Unknown]
  - Vomiting projectile [Recovering/Resolving]
  - Constipation [Recovering/Resolving]
  - Emotional distress [Recovering/Resolving]
  - Blood immunoglobulin G decreased [Unknown]
  - Gastrooesophageal reflux disease [Recovered/Resolved]
  - Abdominal distension [Recovered/Resolved]
  - Pain [Recovered/Resolved]
  - Intestinal metaplasia [Unknown]
  - Pulmonary mass [Not Recovered/Not Resolved]
  - Feeling hot [Recovering/Resolving]
  - Nausea [Recovering/Resolving]

NARRATIVE: CASE EVENT DATE: 2008
